FAERS Safety Report 9275869 (Version 2)
Quarter: 2013Q2

REPORT INFORMATION
  Report Type: Spontaneous
  Country: GB (occurrence: GB)
  Receive Date: 20130507
  Receipt Date: 20130617
  Transmission Date: 20140414
  Serious: Yes (Other)
  Sender: FDA-Public Use
  Company Number: GB-UCBSA-085061

PATIENT
  Age: 54 Year
  Sex: Female

DRUGS (3)
  1. VIMPAT [Suspect]
     Dates: start: 201203, end: 20130520
  2. LAMOTRIGINE [Concomitant]
     Dates: start: 201203
  3. CLOBAZAM [Concomitant]
     Dosage: 10 MG NOCTE (NIGHT)
     Dates: start: 201203

REACTIONS (2)
  - Nodal arrhythmia [Recovered/Resolved]
  - Palpitations [Recovered/Resolved]
